FAERS Safety Report 9433797 (Version 2)
Quarter: 2014Q1

REPORT INFORMATION
  Report Type: Spontaneous
  Country: FR (occurrence: FR)
  Receive Date: 20130731
  Receipt Date: 20140107
  Transmission Date: 20141002
  Serious: Yes (Other)
  Sender: FDA-Public Use
  Company Number: PHHY2013FR079903

PATIENT
  Age: 41 Year
  Sex: Male

DRUGS (3)
  1. TEGRETOL [Suspect]
     Indication: EPILEPSY
     Dosage: UNK UKN, TID
     Route: 048
  2. BARACLUDE [Suspect]
     Indication: CHRONIC HEPATITIS B
     Dosage: UNK UKN, BID
     Route: 048
     Dates: start: 201204
  3. METOJECT [Suspect]
     Dosage: ONCE WEEKLY
     Route: 058
     Dates: start: 20130415

REACTIONS (1)
  - Weight increased [Unknown]
